FAERS Safety Report 8328634-2 (Version None)
Quarter: 2012Q2

REPORT INFORMATION
  Report Type: 
  Country: None (occurrence: None)
  Receive Date: 20120430
  Receipt Date: 20120412
  Transmission Date: 20120825
  Serious: Yes (Death, Other)
  Sender: FDA-Public Use
  Company Number: 2012MA005043

PATIENT
  Age: 52 Year
  Sex: Male

DRUGS (4)
  1. VINORELBINE [Concomitant]
  2. DEXAMETHASONE [Concomitant]
  3. PHENYTOIN [Suspect]
     Dosage: 300 MG;QD
  4. CISPLATIN [Concomitant]

REACTIONS (4)
  - TOXIC EPIDERMAL NECROLYSIS [None]
  - PNEUMONIA [None]
  - BACTERIAL SEPSIS [None]
  - RESPIRATORY FAILURE [None]
